FAERS Safety Report 6064536-2 (Version None)
Quarter: 2009Q1

REPORT INFORMATION
  Report Type: 
  Country: None (occurrence: None)
  Receive Date: 20090204
  Receipt Date: 20090129
  Transmission Date: 20090719
  Serious: Yes (Hospitalization)
  Sender: FDA-Public Use
  Company Number: A0766387A

PATIENT
  Age: 57 Year
  Sex: Female
  Weight: 55.5 kg

DRUGS (12)
  1. LAPATINIB [Suspect]
     Indication: OVARIAN CANCER
     Dosage: 1000MG PER DAY
     Route: 048
     Dates: start: 20051114
  2. CARBOPLATIN [Suspect]
     Indication: OVARIAN CANCER
     Route: 042
     Dates: start: 20051114
  3. PACLITAXEL [Suspect]
     Indication: OVARIAN CANCER
     Dosage: 6MGM2 CYCLIC
     Route: 042
     Dates: start: 20051114
  4. LORAZEPAM [Concomitant]
  5. ASPIRIN [Concomitant]
  6. VITAMIN D [Concomitant]
  7. LIPITOR [Concomitant]
  8. ZOFRAN [Concomitant]
  9. DECADRON [Concomitant]
     Indication: PREMEDICATION
  10. BENADRYL [Concomitant]
     Indication: PREMEDICATION
  11. PEPCID [Concomitant]
     Indication: PREMEDICATION
  12. ATIVAN [Concomitant]
     Indication: PREMEDICATION

REACTIONS (5)
  - DYSARTHRIA [None]
  - HEADACHE [None]
  - HYPOAESTHESIA [None]
  - MENTAL STATUS CHANGES [None]
  - VISION BLURRED [None]
